FAERS Safety Report 7157110-8 (Version None)
Quarter: 2010Q4

REPORT INFORMATION
  Report Type: 
  Country: None (occurrence: None)
  Receive Date: 20101214
  Receipt Date: 20100107
  Transmission Date: 20110411
  Serious: No
  Sender: FDA-Public Use
  Company Number: US-ASTRAZENECA-2010SE00807

PATIENT
  Age: 28202 Day
  Sex: Female
  Weight: 72.6 kg

DRUGS (3)
  1. CRESTOR [Suspect]
     Indication: BLOOD CHOLESTEROL
     Dosage: DAILY
     Route: 048
  2. METOPROLOL [Concomitant]
     Indication: BLOOD PRESSURE
  3. RANEXA [Concomitant]
     Indication: ANGINA PECTORIS

REACTIONS (3)
  - CHEST PAIN [None]
  - DIZZINESS [None]
  - SKIN BURNING SENSATION [None]
